FAERS Safety Report 5190715-2 (Version None)
Quarter: 2006Q4

REPORT INFORMATION
  Report Type: 
  Country: None (occurrence: None)
  Receive Date: 20061218
  Receipt Date: 20061204
  Transmission Date: 20070319
  Serious: Yes (Hospitalization)
  Sender: FDA-Public Use
  Company Number: 2006AL003791

PATIENT
  Age: 27 Year
  Sex: Male

DRUGS (3)
  1. PAREGORIC LIQUID USP (ALPHARMA) [Suspect]
     Indication: PAIN
  2. DICLOFENAC SODIUM [Concomitant]
  3. ACETAMINOPHEN [Concomitant]

REACTIONS (12)
  - ACUTE GENERALISED EXANTHEMATOUS PUSTULOSIS [None]
  - ALANINE AMINOTRANSFERASE INCREASED [None]
  - ASPARTATE AMINOTRANSFERASE INCREASED [None]
  - C-REACTIVE PROTEIN INCREASED [None]
  - EOSINOPHILIA [None]
  - LEUKOCYTOSIS [None]
  - LYMPHOCYTE TRANSFORMATION TEST POSITIVE [None]
  - RED BLOOD CELL SEDIMENTATION RATE INCREASED [None]
  - SEPTIC SHOCK [None]
  - SKIN GRAFT [None]
  - SKIN TEST POSITIVE [None]
  - TOXIC SHOCK SYNDROME [None]
